FAERS Safety Report 8914359 (Version 1)
Quarter: 2012Q4

REPORT INFORMATION
  Report Type: 
  Country: GB (occurrence: GB)
  Receive Date: 20121118
  Receipt Date: 20121118
  Transmission Date: 20130627
  Serious: Yes (Other)
  Sender: FDA-Public Use
  Company Number: GB-MYLANLABS-2012S1023069

PATIENT
  Sex: Male

DRUGS (1)
  1. NAPROXEN [Suspect]
     Indication: GOUT

REACTIONS (3)
  - Oral discomfort [Recovering/Resolving]
  - Mouth ulceration [Unknown]
  - Toothache [Recovering/Resolving]
